FAERS Safety Report 8802229 (Version 1)
Quarter: 2012Q4

REPORT INFORMATION
  Report Type: 
  Country: NL (occurrence: NL)
  Receive Date: 20120921
  Receipt Date: 20120921
  Transmission Date: 20130627
  Serious: Yes (Life-Threatening, Hospitalization, Other)
  Sender: FDA-Public Use
  Company Number: NL-ELI_LILLY_AND_COMPANY-NL201209002866

PATIENT
  Age: 0 Year
  Sex: Female

DRUGS (3)
  1. FLUOXETINE HYDROCHLORIDE [Suspect]
     Dosage: 20 mg, UNK
     Route: 064
     Dates: start: 2012
  2. ALPRAZOLAM [Concomitant]
     Dosage: 0.5 mg, UNK
     Route: 064
     Dates: start: 2012
  3. OXAZEPAM [Concomitant]
     Route: 064

REACTIONS (13)
  - Neonatal asphyxia [Recovered/Resolved]
  - Stridor [Unknown]
  - Left ventricular dysfunction [Unknown]
  - Cardiovascular insufficiency [Unknown]
  - Hepatic haemorrhage [Unknown]
  - Anaemia [Unknown]
  - Hyperglycaemia [Unknown]
  - Hypokalaemia [Unknown]
  - Urinary retention [Unknown]
  - Infection [Unknown]
  - Unevaluable event [Unknown]
  - Drug withdrawal syndrome neonatal [Unknown]
  - Foetal exposure during pregnancy [Recovered/Resolved]
